FAERS Safety Report 7819639-6 (Version None)
Quarter: 2011Q4

REPORT INFORMATION
  Report Type: 
  Country: None (occurrence: None)
  Receive Date: 20111013
  Receipt Date: 20111003
  Transmission Date: 20120403
  Serious: Yes (Hospitalization)
  Sender: FDA-Public Use
  Company Number: 1000024554

PATIENT
  Age: 91 Year
  Sex: Female

DRUGS (3)
  1. NEXIUM (ESOMEPRAZOLE) (40 MILLIGRAM, TABLETS) [Suspect]
     Dosage: 40 MG (40 MG,1 IN 1 D),ORAL
     Route: 048
  2. COUMADIN (WARFARIN SODIUM) (TABLETS) (WARFARIN SODIUM) [Concomitant]
  3. ESCITALOPRAM [Suspect]
     Dosage: 40 MG (40 MG,1 IN 1 D),ORAL
     Route: 048

REACTIONS (3)
  - UPPER GASTROINTESTINAL HAEMORRHAGE [None]
  - OVERDOSE [None]
  - DRUG PRESCRIBING ERROR [None]
